FAERS Safety Report 9375327 (Version 2)
Quarter: 2013Q2

REPORT INFORMATION
  Report Type: Spontaneous
  Country: US (occurrence: US)
  Receive Date: 20130628
  Receipt Date: 20130628
  Transmission Date: 20140414
  Serious: Yes (Other)
  Sender: FDA-Public Use
  Company Number: US-ENDO PHARMACEUTICALS INC.-HCDA20130098

PATIENT
  Age: 69 Year
  Sex: Male
  Weight: 65.83 kg

DRUGS (1)
  1. ACETAMINOPHEN W/HYDROCODONE BITARTRATE [Suspect]
     Indication: PAIN
     Dosage: 5/162.5 MG
     Route: 048

REACTIONS (1)
  - Poisoning [Recovered/Resolved]
